FAERS Safety Report 7455453-1 (Version None)
Quarter: 2011Q2

REPORT INFORMATION
  Report Type: 
  Country: None (occurrence: None)
  Receive Date: 20110503
  Receipt Date: 20110427
  Transmission Date: 20111010
  Serious: Yes (Hospitalization, Other)
  Sender: FDA-Public Use
  Company Number: US-ABBOTT-11P-163-0722706-00

PATIENT
  Sex: Female

DRUGS (2)
  1. HUMIRA [Suspect]
     Indication: ARTHRITIS
     Route: 058
  2. MULTIPLE UNKNOWN CONCOMITANT MEDICATIONS [Concomitant]
     Indication: PRODUCT USED FOR UNKNOWN INDICATION

REACTIONS (4)
  - BACK PAIN [None]
  - MUSCLE STRAIN [None]
  - SPINAL FRACTURE [None]
  - MUSCLE SPASMS [None]
